FAERS Safety Report 25234802 (Version 4)
Quarter: 2025Q3

REPORT INFORMATION
  Report Type: Report from Study
  Country: US (occurrence: US)
  Receive Date: 20250424
  Receipt Date: 20250707
  Transmission Date: 20251021
  Serious: Yes (Hospitalization, Other)
  Sender: CSL BEHRING
  Company Number: US-BEH-2025202684

PATIENT
  Age: 33 Year
  Sex: Male
  Weight: 142.18 kg

DRUGS (6)
  1. BERINERT [Suspect]
     Active Substance: HUMAN C1-ESTERASE INHIBITOR
     Indication: Hereditary angioedema
     Dosage: 8000 IU/KG, BIW
     Route: 058
     Dates: start: 20250331, end: 20250331
  2. BERINERT [Suspect]
     Active Substance: HUMAN C1-ESTERASE INHIBITOR
     Indication: Prophylaxis
     Dosage: 8000 IU/KG, BIW
     Route: 058
     Dates: start: 20250421
  3. BERINERT [Suspect]
     Active Substance: HUMAN C1-ESTERASE INHIBITOR
     Dosage: 8000 IU/KG, BIW
     Route: 058
     Dates: start: 20250422, end: 20250422
  4. BERINERT [Suspect]
     Active Substance: HUMAN C1-ESTERASE INHIBITOR
     Dosage: 8000 IU/KG, BIW
     Route: 058
     Dates: end: 20250428
  5. BERINERT [Suspect]
     Active Substance: HUMAN C1-ESTERASE INHIBITOR
     Indication: Hereditary angioedema
     Dosage: 8000 IU/KG, BIW
     Route: 058
     Dates: end: 20250422
  6. BERINERT [Suspect]
     Active Substance: HUMAN C1-ESTERASE INHIBITOR
     Indication: Prophylaxis
     Dosage: 8000 IU/KG, BIW
     Route: 058
     Dates: end: 20250428

REACTIONS (5)
  - Hereditary angioedema [Recovering/Resolving]
  - Stress [Recovering/Resolving]
  - Hereditary angioedema [Recovering/Resolving]
  - Illness [Recovering/Resolving]
  - Upper respiratory tract infection [Recovering/Resolving]

NARRATIVE: CASE EVENT DATE: 20250331
